FAERS Safety Report 15733841 (Version 1)
Quarter: 2018Q4

REPORT INFORMATION
  Report Type: Spontaneous
  Country: US (occurrence: US)
  Receive Date: 20181217
  Receipt Date: 20181217
  Transmission Date: 20190205
  Serious: Yes (Death)
  Sender: FDA-Public Use
  Company Number: None

PATIENT
  Age: 28 Year
  Sex: Female

DRUGS (5)
  1. FENTANYL. [Suspect]
     Active Substance: FENTANYL
  2. MORPHINE [Suspect]
     Active Substance: MORPHINE
  3. KRATOM [Suspect]
     Active Substance: MITRAGYNINE\HERBALS
  4. OXYCODONE [Concomitant]
     Active Substance: OXYCODONE
  5. ALPRAZOLAM. [Concomitant]
     Active Substance: ALPRAZOLAM

REACTIONS (2)
  - Toxicity to various agents [None]
  - Accident [None]

NARRATIVE: CASE EVENT DATE: 20171111
